FAERS Safety Report 6029500-8 (Version None)
Quarter: 2009Q1

REPORT INFORMATION
  Report Type: 
  Country: None (occurrence: None)
  Receive Date: 20090106
  Receipt Date: 20081226
  Transmission Date: 20090719
  Serious: Yes (Other)
  Sender: FDA-Public Use
  Company Number: SE-MERCK-0812USA05070

PATIENT
  Sex: Male

DRUGS (6)
  1. DECADRON [Suspect]
     Indication: LYMPHOHISTIOCYTOSIS
     Route: 048
  2. ETOPOSIDE [Concomitant]
     Route: 065
  3. CYCLOSPORINE [Concomitant]
     Route: 065
  4. METHOTREXATE [Concomitant]
     Route: 065
  5. ANTILYMPHOCYTE IMMUNOGLOBULIN [Concomitant]
     Route: 065
  6. BUSULFAN [Concomitant]
     Route: 065

REACTIONS (1)
  - DRUG INEFFECTIVE [None]
